FAERS Safety Report 5695467-5 (Version None)
Quarter: 2008Q2

REPORT INFORMATION
  Report Type: 
  Country: None (occurrence: None)
  Receive Date: 20080403
  Receipt Date: 20080324
  Transmission Date: 20081010
  Serious: Yes (Other)
  Sender: FDA-Public Use
  Company Number: 231866J08USA

PATIENT
  Age: 46 Year
  Weight: 68.0396 kg

DRUGS (3)
  1. REBIF [Suspect]
     Indication: MULTIPLE SCLEROSIS
     Dosage: 44 MCG, 3 IN 1 WEEKS, SUBCUTANEOUS
     Route: 058
     Dates: start: 20041130
  2. BACLOFEN [Concomitant]
  3. GABAPENTIN [Concomitant]

REACTIONS (2)
  - HEPATOBILIARY SCAN ABNORMAL [None]
  - MUSCULOSKELETAL PAIN [None]
